FAERS Safety Report 13109639 (Version 1)
Quarter: 2017Q1

REPORT INFORMATION
  Report Type: Spontaneous
  Country: US (occurrence: US)
  Receive Date: 20170112
  Receipt Date: 20170112
  Transmission Date: 20170428
  Serious: No
  Sender: FDA-Public Use
  Company Number: US-TARO-2016TAR00811

PATIENT
  Age: 22 Year
  Sex: Female
  Weight: 70.3 kg

DRUGS (1)
  1. CLOTRIMAZOLE VAGINAL CREAM USP 1% 7 DAY [Suspect]
     Active Substance: CLOTRIMAZOLE
     Dosage: 1 DOSAGE UNITS, 1X/DAY
     Route: 067
     Dates: start: 20160919, end: 20161001

REACTIONS (3)
  - Menstruation delayed [Recovered/Resolved]
  - Abdominal pain [Recovered/Resolved]
  - Pyrexia [Recovered/Resolved]

NARRATIVE: CASE EVENT DATE: 20160924
